FAERS Safety Report 15385480 (Version 1)
Quarter: 2018Q4

REPORT INFORMATION
  Report Type: Spontaneous
  Country: GB (occurrence: GB)
  Receive Date: 20180914
  Receipt Date: 20180914
  Transmission Date: 20190204
  Serious: Yes (Other)
  Sender: FDA-Public Use
  Company Number: GB-AUROBINDO-AUR-APL-2018-045652

PATIENT
  Age: 41 Year
  Sex: Female

DRUGS (5)
  1. IBUPROFEN. [Suspect]
     Active Substance: IBUPROFEN
     Indication: PRODUCT USED FOR UNKNOWN INDICATION
     Dosage: 400 MILLIGRAM, 3 TIMES A DAY
     Route: 048
     Dates: start: 20180608, end: 20180612
  2. CODEINE TABLETS [Suspect]
     Active Substance: CODEINE
     Indication: PRODUCT USED FOR UNKNOWN INDICATION
     Dosage: 60 MILLIGRAM, FOUR TIMES/DAY
     Route: 048
     Dates: start: 20180611, end: 20180612
  3. COCODAMOL [Suspect]
     Active Substance: ACETAMINOPHEN\CODEINE PHOSPHATE
     Indication: PAIN
     Dosage: 8/500 MG QDS
     Route: 048
     Dates: start: 20180610, end: 20180611
  4. PARACETAMOL 500MG [Suspect]
     Active Substance: ACETAMINOPHEN
     Indication: PAIN
     Dosage: 1000 MILLIGRAM, FOUR TIMES/DAY
     Route: 048
     Dates: start: 20180610, end: 20180612
  5. OTEX [Suspect]
     Active Substance: CARBAMIDE PEROXIDE
     Indication: EXCESSIVE CERUMEN PRODUCTION
     Dosage: 1 DOSAGE FORM, ONCE A DAY
     Route: 001
     Dates: start: 20180606, end: 20180608

REACTIONS (8)
  - Malaise [Unknown]
  - Deafness [Recovering/Resolving]
  - Swelling [Recovered/Resolved]
  - Instillation site burn [Recovered/Resolved]
  - Pain [Recovered/Resolved]
  - Ear infection [Recovered/Resolved]
  - External ear cellulitis [Recovered/Resolved]
  - Nausea [Unknown]

NARRATIVE: CASE EVENT DATE: 20180608
